FAERS Safety Report 6664190-2 (Version None)
Quarter: 2010Q2

REPORT INFORMATION
  Report Type: 
  Country: None (occurrence: None)
  Receive Date: 20100401
  Receipt Date: 20100324
  Transmission Date: 20101027
  Serious: Yes (Disabling)
  Sender: FDA-Public Use
  Company Number: FR-SANOFI-AVENTIS-2009SA007464

PATIENT
  Age: 62 Year
  Sex: Female
  Weight: 57 kg

DRUGS (6)
  1. PLAVIX [Suspect]
     Indication: ACUTE CORONARY SYNDROME
     Route: 048
     Dates: start: 20081201, end: 20100101
  2. KARDEGIC [Concomitant]
     Indication: ACUTE CORONARY SYNDROME
     Route: 048
     Dates: start: 20081201
  3. SELOKEN [Concomitant]
     Dates: start: 20081201
  4. TAHOR [Concomitant]
     Indication: DRUG USE FOR UNKNOWN INDICATION
     Dates: start: 20081201
  5. PERINDOPRIL [Concomitant]
     Indication: DRUG USE FOR UNKNOWN INDICATION
  6. EZETROL [Concomitant]
     Route: 048
     Dates: start: 20090901

REACTIONS (4)
  - OEDEMA PERIPHERAL [None]
  - PARAESTHESIA [None]
  - RHEUMATOID ARTHRITIS [None]
  - SYNOVITIS [None]
